FAERS Safety Report 20925088 (Version 3)
Quarter: 2022Q3

REPORT INFORMATION
  Report Type: Spontaneous
  Country: US (occurrence: US)
  Receive Date: 20220607
  Receipt Date: 20220719
  Transmission Date: 20221026
  Serious: No
  Sender: FDA-Public Use
  Company Number: US-PFIZER INC-202200797543

PATIENT
  Sex: Male

DRUGS (1)
  1. DEPO-MEDROL [Suspect]
     Active Substance: METHYLPREDNISOLONE ACETATE
     Indication: Hypersensitivity
     Dosage: UNK (80 MG/ML (4 SHOTS A YEAR))
     Dates: end: 202108

REACTIONS (1)
  - Anxiety [Unknown]
